FAERS Safety Report 8607751 (Version 3)
Quarter: 2012Q4

REPORT INFORMATION
  Report Type: 
  Country: JP (occurrence: JP)
  Receive Date: 20120611
  Receipt Date: 20120831
  Transmission Date: 20130627
  Serious: Yes (Hospitalization, Congenital Anomaly)
  Sender: FDA-Public Use
  Company Number: JP-ELI_LILLY_AND_COMPANY-JP201205010408

PATIENT
  Sex: Female
  Weight: 2.43 kg

DRUGS (2)
  1. ZYPREXA [Suspect]
     Dosage: UNK
     Route: 064
     Dates: end: 20120528
  2. ZYPREXA [Suspect]
     Dosage: UNK
     Route: 064
     Dates: end: 20120528

REACTIONS (2)
  - Oesophageal atresia [Not Recovered/Not Resolved]
  - Foetal exposure during pregnancy [Recovered/Resolved]
